FAERS Safety Report 12871867 (Version 2)
Quarter: 2017Q1

REPORT INFORMATION
  Report Type: Report from Study
  Country: AU (occurrence: AU)
  Receive Date: 20161021
  Receipt Date: 20170104
  Transmission Date: 20170428
  Serious: Yes (Death)
  Sender: FDA-Public Use
  Company Number: AU-ROCHE-1844511

PATIENT
  Sex: Female

DRUGS (1)
  1. ACTEMRA [Suspect]
     Active Substance: TOCILIZUMAB
     Indication: RHEUMATOID ARTHRITIS
     Route: 041
     Dates: start: 20160209, end: 20160826

REACTIONS (4)
  - Pulmonary oedema [Fatal]
  - Pulmonary fibrosis [Fatal]
  - Pulmonary hypertension [Fatal]
  - Pneumonia [Fatal]
